FAERS Safety Report 7434930-3 (Version None)
Quarter: 2011Q2

REPORT INFORMATION
  Report Type: 
  Country: None (occurrence: None)
  Receive Date: 20110425
  Receipt Date: 20110418
  Transmission Date: 20111010
  Serious: Yes (Hospitalization)
  Sender: FDA-Public Use
  Company Number: US-ALEXION-A201100346

PATIENT
  Sex: Female

DRUGS (18)
  1. FOLIC ACID [Concomitant]
     Dosage: UNK
  2. ATIVAN [Concomitant]
     Dosage: UNK
  3. DRISDOL [Concomitant]
     Dosage: UNK
  4. COLAZAL [Concomitant]
     Dosage: UNK
  5. KLONOPIN [Concomitant]
     Dosage: UNK
  6. ESTRING [Concomitant]
     Dosage: UNK
  7. FISH OIL [Concomitant]
     Dosage: UNK
  8. ESTRACE [Concomitant]
     Dosage: UNK
  9. SYNTHROID [Concomitant]
     Dosage: UNK
  10. CLARITIN [Concomitant]
     Dosage: UNK
  11. SOLIRIS [Suspect]
     Indication: PAROXYSMAL NOCTURNAL HAEMOGLOBINURIA
     Dosage: 600 MG, QW
     Route: 042
     Dates: start: 20110103
  12. SOLIRIS [Suspect]
     Dosage: 900 MG, Q2W
     Route: 042
     Dates: end: 20110308
  13. BENTYL [Concomitant]
     Dosage: UNK
  14. PRISTIQ [Concomitant]
     Dosage: UNK
  15. VALTREX [Concomitant]
     Dosage: UNK
  16. VITAMIN E [Concomitant]
     Dosage: UNK
  17. VITAMIN B-12 [Concomitant]
     Dosage: UNK
  18. VICODIN [Concomitant]
     Dosage: UNK

REACTIONS (4)
  - DYSPNOEA [None]
  - PLEURAL EFFUSION [None]
  - URINARY RETENTION [None]
  - CHEST PAIN [None]
